FAERS Safety Report 4764189-7 (Version None)
Quarter: 2005Q3

REPORT INFORMATION
  Report Type: 
  Country: None (occurrence: None)
  Receive Date: 20050902
  Receipt Date: 20050502
  Transmission Date: 20060218
  Serious: No
  Sender: FDA-Public Use
  Company Number: MPS1-10370

PATIENT
  Age: 10 Year
  Sex: Female
  Weight: 16.3295 kg

DRUGS (1)
  1. ALDURAZYME [Suspect]
     Dosage: 8.7 MG IV
     Route: 042
     Dates: start: 20040618

REACTIONS (1)
  - CATHETER SITE OEDEMA [None]
